FAERS Safety Report 6809260-0 (Version None)
Quarter: 2010Q2

REPORT INFORMATION
  Report Type: 
  Country: None (occurrence: None)
  Receive Date: 20100630
  Receipt Date: 20100217
  Transmission Date: 20101027
  Serious: Yes (Other)
  Sender: FDA-Public Use
  Company Number: US-ASTRAZENECA-2007UW08465

PATIENT
  Age: 629 Month
  Sex: Male
  Weight: 157.4 kg

DRUGS (8)
  1. SEROQUEL [Suspect]
     Indication: DEPRESSION
     Route: 048
     Dates: start: 20020101, end: 20070501
  2. SEROQUEL [Suspect]
     Indication: BIPOLAR DISORDER
     Route: 048
     Dates: start: 20020101, end: 20070501
  3. SEROQUEL [Suspect]
     Route: 048
     Dates: start: 20050408
  4. SEROQUEL [Suspect]
     Route: 048
     Dates: start: 20050408
  5. FUROSEMIDE [Concomitant]
     Dates: start: 20050425
  6. ATENOLOL [Concomitant]
     Dates: start: 20050513
  7. NITROGLYCERIN [Concomitant]
     Dosage: 0.4 MG SUB
     Dates: start: 20050517
  8. NEXIUM [Concomitant]
     Dates: start: 20050601

REACTIONS (6)
  - ACUTE CORONARY SYNDROME [None]
  - CHEST PAIN [None]
  - COLON CANCER [None]
  - DEPRESSION [None]
  - DIABETES MELLITUS [None]
  - POST-TRAUMATIC STRESS DISORDER [None]
